FAERS Safety Report 20198735 (Version 1)
Quarter: 2021Q4

REPORT INFORMATION
  Report Type: Spontaneous
  Country: HU (occurrence: HU)
  Receive Date: 20211217
  Receipt Date: 20211217
  Transmission Date: 20220303
  Serious: Yes (Hospitalization)
  Sender: FDA-Public Use
  Company Number: HU-CELGENE-HUN-20211203279

PATIENT
  Age: 66 Year
  Sex: Male
  Weight: 65 kg

DRUGS (3)
  1. ONUREG [Suspect]
     Active Substance: AZACITIDINE
     Indication: Acute myeloid leukaemia
     Dosage: 300 MILLIGRAM
     Route: 048
     Dates: start: 20210723, end: 20211118
  2. Piperacillin and Tazobactum [Concomitant]
     Indication: Product used for unknown indication
     Dosage: 16 GRAM
     Route: 041
  3. Piperacillin and Tazobactum [Concomitant]
     Dosage: 20 GRAM
     Route: 041

REACTIONS (3)
  - Anaemia [Unknown]
  - Agranulocytosis [Unknown]
  - Thrombocytopenia [Unknown]

NARRATIVE: CASE EVENT DATE: 20211207
